FAERS Safety Report 8333102-8 (Version None)
Quarter: 2012Q2

REPORT INFORMATION
  Report Type: 
  Country: None (occurrence: None)
  Receive Date: 20120503
  Receipt Date: 20120501
  Transmission Date: 20120825
  Serious: Yes (Other)
  Sender: FDA-Public Use
  Company Number: PHFR2011IE05078

PATIENT
  Sex: Male

DRUGS (1)
  1. CLOZARIL [Suspect]
     Indication: SCHIZOPHRENIA
     Dosage: 400 MG, DAILY
     Route: 048
     Dates: start: 20080808

REACTIONS (5)
  - MEAN CELL VOLUME ABNORMAL [None]
  - HAEMOGLOBIN DECREASED [None]
  - HYPOCHROMASIA [None]
  - POIKILOCYTOSIS [None]
  - IRON DEFICIENCY [None]
